FAERS Safety Report 18375135 (Version 1)
Quarter: 2020Q4

REPORT INFORMATION
  Report Type: Report from Study
  Country: US (occurrence: US)
  Receive Date: 20201013
  Receipt Date: 20201013
  Transmission Date: 20210114
  Serious: Yes (Death)
  Sender: FDA-Public Use
  Company Number: US-TAIHO ONCOLOGY  INC-EU-2020-03621

PATIENT
  Age: 59 Year
  Sex: Male

DRUGS (10)
  1. LONSURF [Suspect]
     Active Substance: TIPIRACIL HYDROCHLORIDE\TRIFLURIDINE
     Indication: GASTRIC CANCER
     Dosage: CYCLE UNKNOWN
     Route: 048
     Dates: start: 20200222
  2. SYNTHROID [Concomitant]
     Active Substance: LEVOTHYROXINE SODIUM
  3. LORAZEPAM. [Concomitant]
     Active Substance: LORAZEPAM
  4. AMLODIPINE [Concomitant]
     Active Substance: AMLODIPINE BESYLATE
  5. OXALIPLATIN. [Concomitant]
     Active Substance: OXALIPLATIN
  6. MAGNESIUM [Concomitant]
     Active Substance: MAGNESIUM
  7. XELODA [Concomitant]
     Active Substance: CAPECITABINE
  8. CALCITRIOL. [Concomitant]
     Active Substance: CALCITRIOL
  9. MORPHINE [Concomitant]
     Active Substance: MORPHINE
  10. ZOFRAN [Concomitant]
     Active Substance: ONDANSETRON HYDROCHLORIDE

REACTIONS (1)
  - Death [Fatal]

NARRATIVE: CASE EVENT DATE: 20201003
